FAERS Safety Report 25805829 (Version 1)
Quarter: 2025Q3

REPORT INFORMATION
  Report Type: Spontaneous
  Country: ID (occurrence: ID)
  Receive Date: 20250916
  Receipt Date: 20250916
  Transmission Date: 20251020
  Serious: Yes (Death, Life-Threatening)
  Sender: ACCORD
  Company Number: ID-MLMSERVICE-20250828-PI629005-00140-1

PATIENT
  Age: 1 Year
  Sex: Female

DRUGS (9)
  1. CISPLATIN [Suspect]
     Active Substance: CISPLATIN
     Indication: Extragonadal primary germ cell tumour
     Dates: start: 20250307
  2. ETOPOSIDE [Suspect]
     Active Substance: ETOPOSIDE
     Indication: Extragonadal primary germ cell tumour
     Dates: start: 20250307
  3. BLEOMYCIN [Suspect]
     Active Substance: BLEOMYCIN SULFATE
     Indication: Extragonadal primary germ cell tumour
     Dates: start: 20250307
  4. BLEOMYCIN [Suspect]
     Active Substance: BLEOMYCIN SULFATE
     Indication: Metastases to lymph nodes
     Dates: start: 20250307
  5. BLEOMYCIN [Suspect]
     Active Substance: BLEOMYCIN SULFATE
     Indication: Vaginal cancer
     Dates: start: 20250307
  6. ETOPOSIDE [Suspect]
     Active Substance: ETOPOSIDE
     Indication: Vaginal cancer
     Dates: start: 20250307
  7. CISPLATIN [Suspect]
     Active Substance: CISPLATIN
     Indication: Vaginal cancer
     Dates: start: 20250307
  8. CISPLATIN [Suspect]
     Active Substance: CISPLATIN
     Indication: Metastases to lymph nodes
     Dates: start: 20250307
  9. ETOPOSIDE [Suspect]
     Active Substance: ETOPOSIDE
     Indication: Metastases to lymph nodes
     Dates: start: 20250307

REACTIONS (3)
  - Sepsis [Fatal]
  - Respiratory distress [Fatal]
  - Mental status changes [Fatal]

NARRATIVE: CASE EVENT DATE: 20250315
